FAERS Safety Report 5835165-8 (Version None)
Quarter: 2008Q3

REPORT INFORMATION
  Report Type: 
  Country: None (occurrence: None)
  Receive Date: 20080725
  Receipt Date: 20080519
  Transmission Date: 20090109
  Serious: Yes (Life-Threatening, Hospitalization)
  Sender: FDA-Public Use
  Company Number: OPER20080100

PATIENT
  Age: 71 Year
  Sex: Female
  Weight: 68.5 kg

DRUGS (14)
  1. OPANA ER [Suspect]
     Indication: FIBROMYALGIA
     Dosage: 40 MG, 1 TAB BID, PER ORAL
     Route: 048
  2. LYRICA [Suspect]
     Indication: RHEUMATOID ARTHRITIS
     Dosage: 150 MG, 1 TAB BID, PER ORAL
     Route: 048
     Dates: start: 20070917
  3. LYRICA [Suspect]
     Indication: FIBROMYALGIA
     Dosage: 225 MG, 1 TAB BID, PER ORAL
     Route: 048
  4. LYRICA [Suspect]
     Indication: FIBROMYALGIA
     Dosage: 225, HALF TAB BID, PER ORAL
     Route: 048
     Dates: start: 20080114
  5. LYRICA [Suspect]
     Indication: FIBROMYALGIA
     Dosage: 200 MG, 1 TAB BID, PER ORAL
     Route: 048
  6. LYRICA [Suspect]
     Indication: FIBROMYALGIA
     Dosage: 100 MG, PER ORAL
     Route: 048
  7. XANAX [Suspect]
  8. ZOLOFT [Suspect]
     Dosage: 100 MG, 1 TAB DAILY, PER ORAL
     Route: 048
  9. KLONOPIN [Suspect]
  10. WELLBUTRIN [Concomitant]
  11. PAMELOR [Concomitant]
  12. CELEBREX [Concomitant]
  13. ACETYLSALICYLIC ACID SRT [Concomitant]
  14. METHOTREXATE [Concomitant]

REACTIONS (7)
  - AGITATION [None]
  - GASTROENTERITIS VIRAL [None]
  - MYOCARDIAL INFARCTION [None]
  - NAUSEA [None]
  - PAIN [None]
  - SEROTONIN SYNDROME [None]
  - VOMITING [None]
